FAERS Safety Report 8035903-2 (Version None)
Quarter: 2012Q1

REPORT INFORMATION
  Report Type: 
  Country: None (occurrence: None)
  Receive Date: 20120111
  Receipt Date: 20120111
  Transmission Date: 20120608
  Serious: No
  Sender: FDA-Public Use
  Company Number: None

PATIENT
  Sex: Male
  Weight: 81.646 kg

DRUGS (1)
  1. OXACILLIN [Suspect]
     Indication: OSTEOMYELITIS
     Dosage: 2 GRAM
     Route: 042
     Dates: start: 20111214, end: 20120110

REACTIONS (1)
  - RASH [None]
